FAERS Safety Report 11215931 (Version 1)
Quarter: 2015Q2

REPORT INFORMATION
  Report Type: Spontaneous
  Country: US (occurrence: US)
  Receive Date: 20150624
  Receipt Date: 20150624
  Transmission Date: 20150821
  Serious: No
  Sender: FDA-Public Use
  Company Number: US-PFIZER INC-2015206952

PATIENT
  Age: 78 Year
  Sex: Female
  Weight: 87.75 kg

DRUGS (20)
  1. PERCOCET [Concomitant]
     Active Substance: ACETAMINOPHEN\OXYCODONE HYDROCHLORIDE
     Indication: PROPHYLAXIS
  2. ZYRTEC [Concomitant]
     Active Substance: CETIRIZINE HYDROCHLORIDE
     Indication: HYPERSENSITIVITY
     Dosage: 10 MG, UNK
  3. CEPACOL [Concomitant]
     Active Substance: BENZOCAINE
     Dosage: UNK
  4. ALPRAX [Concomitant]
     Dosage: 5 MG, DAILY
  5. LYRICA [Suspect]
     Active Substance: PREGABALIN
     Indication: FIBROMYALGIA
     Dosage: 50 MG, 3X/DAY
  6. DURAGESIC [Concomitant]
     Active Substance: FENTANYL
     Dosage: 100 ?G, (EVERY 3 DAYS)
  7. MORPHINE SULPHATE [Concomitant]
     Active Substance: MORPHINE SULFATE
     Indication: PAIN
     Dosage: 60 MG, 2X/DAY
  8. CALCIUM CARBONATE. [Concomitant]
     Active Substance: CALCIUM CARBONATE
     Dosage: UNK
  9. CENTRUM [Concomitant]
     Active Substance: VITAMINS
     Indication: PAIN
  10. AMBIEN [Concomitant]
     Active Substance: ZOLPIDEM TARTRATE
     Indication: SLEEP DISORDER
     Dosage: 10 MG, AS NEEDED (REST OF THE NIGHT)
  11. TYLENOL [Concomitant]
     Active Substance: ACETAMINOPHEN
     Indication: ARTHRALGIA
     Dosage: 3000 MG, 24 HOUR PERIOD WHICH CHANGES HER HALF OF THE ARTHRITIC PAIN BECAUSE SHE HAS GOT OSTEOARTHRI
  12. FLEXERIL [Concomitant]
     Active Substance: CYCLOBENZAPRINE HYDROCHLORIDE
     Dosage: 10 MG, UNK
  13. NORVASC [Concomitant]
     Active Substance: AMLODIPINE BESYLATE
     Dosage: 5 MG, DAILY
  14. LYRICA [Suspect]
     Active Substance: PREGABALIN
     Indication: NEURALGIA
     Dosage: 75 MG, 2X/DAY
     Dates: start: 2015
  15. ZANTAC [Concomitant]
     Active Substance: RANITIDINE HYDROCHLORIDE
     Indication: ABDOMINAL DISCOMFORT
     Dosage: 150 MG, 2X/DAY
  16. SENOKOT [Concomitant]
     Active Substance: SENNOSIDES
     Dosage: UNK
  17. KLONOPIN [Concomitant]
     Active Substance: CLONAZEPAM
     Dosage: 1 MG, UNK
  18. PERCOCET [Concomitant]
     Active Substance: ACETAMINOPHEN\OXYCODONE HYDROCHLORIDE
     Indication: PAIN
     Dosage: 325 MG, 4X/DAY
  19. CENTRUM [Concomitant]
     Active Substance: VITAMINS
     Indication: ANXIETY
     Dosage: UNK
  20. TIMOLOL [Concomitant]
     Active Substance: TIMOLOL
     Indication: CHEST PAIN
     Dosage: 25 MG, AS NEEDED

REACTIONS (7)
  - Weight increased [Unknown]
  - Pain [Unknown]
  - Burning sensation [Unknown]
  - Fibromyalgia [Unknown]
  - Activities of daily living impaired [Unknown]
  - Paraesthesia [Unknown]
  - Neuropathy peripheral [Unknown]
